FAERS Safety Report 14062860 (Version 1)
Quarter: 2017Q4

REPORT INFORMATION
  Report Type: Spontaneous
  Country: US (occurrence: US)
  Receive Date: 20171009
  Receipt Date: 20171009
  Transmission Date: 20180321
  Serious: No
  Sender: FDA-Public Use
  Company Number: US-JNJFOC-20170802348

PATIENT
  Age: 10 Year
  Sex: Female
  Weight: 47.63 kg

DRUGS (2)
  1. ZYRTEC-D [Suspect]
     Active Substance: CETIRIZINE HYDROCHLORIDE\PSEUDOEPHEDRINE HYDROCHLORIDE
     Route: 048
  2. ZYRTEC-D [Suspect]
     Active Substance: CETIRIZINE HYDROCHLORIDE\PSEUDOEPHEDRINE HYDROCHLORIDE
     Indication: WRONG DRUG ADMINISTERED
     Dosage: 1 TABLET ONCE
     Route: 048
     Dates: start: 20170801, end: 20170801

REACTIONS (1)
  - Wrong drug administered [Unknown]
